FAERS Safety Report 23870231 (Version 1)
Quarter: 2024Q2

REPORT INFORMATION
  Report Type: Other
  Country: IN (occurrence: JP)
  Receive Date: 20240517
  Receipt Date: 20240517
  Transmission Date: 20240716
  Serious: Yes (Hospitalization, Other)
  Sender: FDA-Public Use
  Company Number: JP-Breckenridge Pharmaceutical, Inc.-2156722

PATIENT
  Age: 80 Year
  Sex: Male

DRUGS (5)
  1. APIXABAN [Suspect]
     Active Substance: APIXABAN
     Indication: Atrial fibrillation
     Route: 048
  2. PREGABALIN [Concomitant]
     Active Substance: PREGABALIN
  3. LIMAPROST [Concomitant]
     Active Substance: LIMAPROST
  4. ESOMEPRAZOLE (ESOMEPRAZOLE MAGNESIUM DIHYDRATE) [Concomitant]
  5. OLMESARTAN MEDOXOMIL [Concomitant]
     Active Substance: OLMESARTAN MEDOXOMIL

REACTIONS (1)
  - Haematoma [Recovered/Resolved]
